FAERS Safety Report 10429993 (Version 1)
Quarter: 2014Q3

REPORT INFORMATION
  Report Type: Spontaneous
  Country: US (occurrence: US)
  Receive Date: 20140904
  Receipt Date: 20140904
  Transmission Date: 20150326
  Serious: Yes (Other)
  Sender: FDA-Public Use
  Company Number: US-MYLAN-2014M1002505

PATIENT

DRUGS (3)
  1. WARFARIN [Concomitant]
     Active Substance: WARFARIN
     Dosage: UNK
  2. LEVOTHYROXINE SODIUM. [Suspect]
     Active Substance: LEVOTHYROXINE SODIUM
     Indication: HYPOTHYROIDISM
     Dosage: 25 ?G, QD, 4X/WEEK
     Route: 048
     Dates: start: 2011
  3. LEVOTHYROXINE SODIUM. [Suspect]
     Active Substance: LEVOTHYROXINE SODIUM
     Dosage: 37.5 ?G, QD, 3X/WEEK
     Route: 048
     Dates: start: 2011

REACTIONS (1)
  - White blood cell count decreased [Recovered/Resolved with Sequelae]

NARRATIVE: CASE EVENT DATE: 2014
